FAERS Safety Report 23927528 (Version 1)
Quarter: 2024Q2

REPORT INFORMATION
  Report Type: Spontaneous
  Country: US (occurrence: US)
  Receive Date: 20240531
  Receipt Date: 20240531
  Transmission Date: 20240716
  Serious: No
  Sender: FDA-Public Use
  Company Number: US-RADIUS HEALTH INC.-2023US003791

PATIENT
  Age: 48 Year
  Sex: Female

DRUGS (1)
  1. TYMLOS [Suspect]
     Active Substance: ABALOPARATIDE
     Indication: Osteoporosis
     Dosage: 80 MICROGRAM, QD
     Route: 058
     Dates: start: 202109, end: 202307

REACTIONS (7)
  - Migraine [Recovering/Resolving]
  - Menstruation irregular [Recovering/Resolving]
  - Sleep disorder [Unknown]
  - Bone pain [Recovering/Resolving]
  - Arthralgia [Recovering/Resolving]
  - Vomiting [Recovering/Resolving]
  - Product use issue [Unknown]

NARRATIVE: CASE EVENT DATE: 20210901
